FAERS Safety Report 7527082-2 (Version None)
Quarter: 2011Q2

REPORT INFORMATION
  Report Type: 
  Country: None (occurrence: None)
  Receive Date: 20110606
  Receipt Date: 20110531
  Transmission Date: 20111010
  Serious: Yes (Hospitalization)
  Sender: FDA-Public Use
  Company Number: US-B.I. PHARMACEUTICALS,INC./RIDGEFIELD-2011-BP-13445BP

PATIENT
  Age: 76 Year
  Sex: Female
  Weight: 70.31 kg

DRUGS (9)
  1. LOVENOX [Concomitant]
     Dates: start: 20110513, end: 20110513
  2. DIOVAN HCT [Concomitant]
  3. ASPIRIN [Concomitant]
     Dosage: 162 MG
     Dates: start: 20110512, end: 20110512
  4. PREVACID [Concomitant]
     Dosage: 30 MG
  5. PRADAXA [Suspect]
     Indication: DEEP VEIN THROMBOSIS
     Dosage: 300 MG
     Route: 048
     Dates: start: 20110514, end: 20110514
  6. METHOTREXATE [Concomitant]
  7. ATENOLOL [Concomitant]
     Dosage: 50 MG
  8. SYNTHROID [Concomitant]
     Dosage: 0.075 MG
  9. CELEBREX [Concomitant]
     Dosage: 400 MG

REACTIONS (1)
  - COMPARTMENT SYNDROME [None]
